FAERS Safety Report 9402438 (Version 1)
Quarter: 2013Q3

REPORT INFORMATION
  Report Type: Report from Study
  Country: FR (occurrence: FR)
  Receive Date: 20130716
  Receipt Date: 20130716
  Transmission Date: 20140515
  Serious: Yes (Other)
  Sender: FDA-Public Use
  Company Number: FR-NOVOPROD-382828

PATIENT
  Age: 55 Year
  Sex: Female
  Weight: 67 kg

DRUGS (7)
  1. NORDITROPIN SIMPLEXX [Suspect]
     Indication: GROWTH HORMONE DEFICIENCY
     Dosage: 330 MG, QD
     Route: 065
     Dates: start: 20040107
  2. NOVORAPID [Concomitant]
     Dates: start: 20050804
  3. GLUCOPHAGE [Concomitant]
     Dosage: 3000 MG, QD
     Dates: start: 20041104
  4. LANTUS [Concomitant]
     Dates: start: 20051102
  5. LEVOTHYROX [Concomitant]
     Dates: start: 20040808
  6. LIPANTHYL [Concomitant]
     Dates: start: 2005
  7. FUMAFER [Concomitant]
     Dates: start: 20051124

REACTIONS (1)
  - Urinary bladder polyp [Recovered/Resolved]
